FAERS Safety Report 12211596 (Version 3)
Quarter: 2016Q2

REPORT INFORMATION
  Report Type: Spontaneous
  Country: US (occurrence: US)
  Receive Date: 20160325
  Receipt Date: 20160613
  Transmission Date: 20160815
  Serious: Yes (Other)
  Sender: FDA-Public Use
  Company Number: ALCN2016US002154

PATIENT
  Age: 76 Year
  Sex: Female

DRUGS (4)
  1. OFLOXACIN. [Suspect]
     Active Substance: OFLOXACIN
     Indication: INTRAOCULAR LENS IMPLANT
     Dosage: 1 GTT, QID
     Route: 047
     Dates: start: 20160223
  2. BSS [Suspect]
     Active Substance: CALCIUM CHLORIDE\MAGNESIUM CHLORIDE\POTASSIUM CHLORIDE\SODIUM ACETATE\SODIUM CHLORIDE\SODIUM CITRATE
     Indication: INTRAOCULAR LENS IMPLANT
     Dosage: UNK
     Route: 047
     Dates: start: 20160223, end: 20160223
  3. BETADINE [Suspect]
     Active Substance: POVIDONE-IODINE
     Indication: INTRAOCULAR LENS IMPLANT
     Dosage: UNK
     Route: 047
     Dates: start: 20160223, end: 20160223
  4. PREDNISOLONE ACETATE. [Suspect]
     Active Substance: PREDNISOLONE ACETATE
     Indication: INTRAOCULAR LENS IMPLANT
     Dosage: 1 GTT, QID
     Route: 047
     Dates: start: 20160223

REACTIONS (3)
  - Toxic anterior segment syndrome [Recovered/Resolved]
  - Anterior chamber cell [Recovered/Resolved]
  - Vision blurred [Recovered/Resolved]

NARRATIVE: CASE EVENT DATE: 20160224
